FAERS Safety Report 7655019-4 (Version None)
Quarter: 2011Q3

REPORT INFORMATION
  Report Type: 
  Country: None (occurrence: None)
  Receive Date: 20110803
  Receipt Date: 20110803
  Transmission Date: 20111222
  Serious: Yes (Hospitalization)
  Sender: FDA-Public Use
  Company Number: None

PATIENT
  Sex: Female
  Weight: 90 kg

DRUGS (2)
  1. BEVACIZUMAB (RHUMAB VEGF) [Suspect]
     Dosage: 1260 MG
     Dates: end: 20110218
  2. TAXOL [Suspect]
     Dosage: 126 MG
     Dates: end: 20110225

REACTIONS (5)
  - PULMONARY OEDEMA [None]
  - PYREXIA [None]
  - INFECTION [None]
  - PNEUMONIA [None]
  - DEVICE RELATED INFECTION [None]
